FAERS Safety Report 4823575-7 (Version None)
Quarter: 2005Q4

REPORT INFORMATION
  Report Type: 
  Country: None (occurrence: None)
  Receive Date: 20051107
  Receipt Date: 20051021
  Transmission Date: 20060501
  Serious: Yes (Hospitalization, Other)
  Sender: FDA-Public Use
  Company Number: 2005BI010383

PATIENT
  Age: 31 Year
  Sex: Female
  Weight: 65.318 kg

DRUGS (1)
  1. NATALIZUMAB [Suspect]
     Indication: RELAPSING-REMITTING MULTIPLE SCLEROSIS
     Dosage: 300 MG;QM; IV
     Route: 042
     Dates: start: 20050201, end: 20050228

REACTIONS (3)
  - DYSMENORRHOEA [None]
  - HEADACHE [None]
  - HEPATITIS [None]
